FAERS Safety Report 20702238 (Version 2)
Quarter: 2022Q2

REPORT INFORMATION
  Report Type: Spontaneous
  Country: TW (occurrence: TW)
  Receive Date: 20220412
  Receipt Date: 20220420
  Transmission Date: 20220721
  Serious: Yes (Life-Threatening, Hospitalization, Other)
  Sender: FDA-Public Use
  Company Number: TW-MLMSERVICE-20220330-3466295-1

PATIENT
  Age: 60 Year
  Sex: Male

DRUGS (12)
  1. SPIRONOLACTONE [Suspect]
     Active Substance: SPIRONOLACTONE
     Dosage: 25 MG, 2X/DAY
     Dates: end: 2020
  2. AMLODIPINE BESYLATE [Suspect]
     Active Substance: AMLODIPINE BESYLATE
     Dosage: 5 MG, 2X/DAY
  3. FUROSEMIDE [Suspect]
     Active Substance: FUROSEMIDE
     Dosage: 40 MG, 1X/DAY
     Dates: end: 20200228
  4. ISOSORBIDE MONONITRATE [Suspect]
     Active Substance: ISOSORBIDE MONONITRATE
     Dosage: 20 MG, 2X/DAY
     Dates: end: 20200228
  5. VALSARTAN [Suspect]
     Active Substance: VALSARTAN
     Dosage: 80 MG, 1X/DAY
     Dates: end: 20200228
  6. BISOPROLOL [Suspect]
     Active Substance: BISOPROLOL
     Dosage: 1.25 MG, 1X/DAY
     Dates: end: 2020
  7. CANAGLIFLOZIN [Suspect]
     Active Substance: CANAGLIFLOZIN
     Dosage: 100 NG, 1X/DAY
     Dates: end: 20200228
  8. PIOGLITAZONE [Suspect]
     Active Substance: PIOGLITAZONE
     Dosage: 30 MG, 1X/DAY
     Dates: end: 20200228
  9. CLOPIDOGREL [Suspect]
     Active Substance: CLOPIDOGREL BISULFATE
     Dosage: 75 MG, 1X/DAY
     Dates: end: 20200228
  10. HYDRALAZINE [Suspect]
     Active Substance: HYDRALAZINE HYDROCHLORIDE
     Dosage: 10 MG, 3X/DAY
     Dates: end: 20200228
  11. ASPIRIN [Suspect]
     Active Substance: ASPIRIN
     Dosage: 100 MG, 1X/DAY
     Dates: end: 20200228
  12. GLIMEPIRIDE [Suspect]
     Active Substance: GLIMEPIRIDE
     Dosage: 2 MG, 3X/DAY

REACTIONS (4)
  - Cardiac failure congestive [Recovering/Resolving]
  - Renal impairment [Recovering/Resolving]
  - Pneumothorax [Recovering/Resolving]
  - Hydronephrosis [Recovering/Resolving]

NARRATIVE: CASE EVENT DATE: 20200201
